FAERS Safety Report 11362467 (Version 1)
Quarter: 2015Q3

REPORT INFORMATION
  Report Type: Report from Study
  Country: US (occurrence: US)
  Receive Date: 20150810
  Receipt Date: 20150810
  Transmission Date: 20151125
  Serious: Yes (Other)
  Sender: FDA-Public Use
  Company Number: US-BAXALTA-2015BAX026951

PATIENT
  Sex: Female
  Weight: 65.76 kg

DRUGS (1)
  1. HUMAN NORMAL IMMUNOGLOBULIN; HYALURONIDASE [Suspect]
     Active Substance: HUMAN IMMUNOGLOBULIN G\HYALURONIDASE RECOMBINANT HUMAN
     Indication: PRIMARY IMMUNODEFICIENCY SYNDROME
     Dosage: 17.5 G, EVERY 4 WK
     Route: 058

REACTIONS (4)
  - Infusion site pain [Not Recovered/Not Resolved]
  - Sinusitis [Recovered/Resolved]
  - Inappropriate schedule of drug administration [Recovered/Resolved]
  - Infusion site extravasation [Recovered/Resolved]
